FAERS Safety Report 26189809 (Version 1)
Quarter: 2025Q4

REPORT INFORMATION
  Report Type: Report from Study
  Country: US (occurrence: US)
  Receive Date: 20251223
  Receipt Date: 20251223
  Transmission Date: 20260118
  Serious: Yes (Other)
  Sender: ALEXION PHARMACEUTICALS
  Company Number: US-AstraZeneca-CH-00999365A

PATIENT
  Age: 32 Year
  Sex: Female

DRUGS (1)
  1. SOLIRIS [Suspect]
     Active Substance: ECULIZUMAB
     Indication: Atypical haemolytic uraemic syndrome
     Dosage: 900 MILLIGRAM

REACTIONS (6)
  - Pneumonia [Unknown]
  - Acute kidney injury [Unknown]
  - Postpartum haemorrhage [Unknown]
  - Thrombocytopenia [Unknown]
  - Blood loss anaemia [Unknown]
  - Hypertension [Unknown]
